FAERS Safety Report 6758676-X (Version None)
Quarter: 2010Q2

REPORT INFORMATION
  Report Type: 
  Country: None (occurrence: None)
  Receive Date: 20100607
  Receipt Date: 20100603
  Transmission Date: 20101027
  Serious: Yes (Death)
  Sender: FDA-Public Use
  Company Number: JP-BAYER-201012278BYL

PATIENT
  Age: 72 Year
  Sex: Male
  Weight: 51 kg

DRUGS (9)
  1. NEXAVAR [Suspect]
     Indication: HEPATIC NEOPLASM MALIGNANT
     Dosage: TOTAL DAILY DOSE: 800 MG  UNIT DOSE: 200 MG
     Route: 048
     Dates: start: 20100315, end: 20100325
  2. NEXAVAR [Suspect]
     Dosage: TOTAL DAILY DOSE: 800 MG  UNIT DOSE: 200 MG
     Route: 048
     Dates: start: 20100407, end: 20100416
  3. ASPIRIN [Concomitant]
     Indication: ANTICOAGULANT THERAPY
     Dosage: UNIT DOSE: 100 MG
     Route: 048
     Dates: end: 20100508
  4. FUROSEMIDE [Concomitant]
     Indication: POLYURIA
     Dosage: UNIT DOSE: 40 MG
     Route: 048
     Dates: end: 20100508
  5. WARFARIN SODIUM [Concomitant]
     Indication: POLYURIA
     Dosage: UNIT DOSE: 1 MG
     Route: 048
     Dates: end: 20100508
  6. RENIVEZE [Concomitant]
     Indication: HYPERTENSION
     Dosage: UNIT DOSE: 5 MG
     Route: 048
     Dates: end: 20100508
  7. MEXITIL [Concomitant]
     Indication: HYPERTENSION
     Dosage: UNIT DOSE: 100 MG
     Route: 048
     Dates: end: 20100508
  8. ARTIST [Concomitant]
     Indication: HYPERTENSION
     Dosage: UNIT DOSE: 2.5 MG
     Route: 048
     Dates: end: 20100508
  9. ALLOPURINOL [Concomitant]
     Indication: HYPERTENSION
     Dosage: UNIT DOSE: 100 MG
     Route: 048
     Dates: end: 20100508

REACTIONS (2)
  - HEPATIC FUNCTION ABNORMAL [None]
  - RENAL FAILURE [None]
